FAERS Safety Report 4959349-6 (Version None)
Quarter: 2006Q1

REPORT INFORMATION
  Report Type: 
  Country: None (occurrence: None)
  Receive Date: 20060331
  Receipt Date: 20060323
  Transmission Date: 20060701
  Serious: Yes (Hospitalization, Other)
  Sender: FDA-Public Use
  Company Number: US-AVENTIS-200612878US

PATIENT
  Age: 13 Year
  Sex: Male

DRUGS (6)
  1. RIFAMPIN [Suspect]
     Indication: SHUNT MALFUNCTION
     Dosage: DOSE: UNKNOWN
  2. RIFAMPIN [Suspect]
     Indication: INFECTION
     Dosage: DOSE: UNKNOWN
  3. MINOCYCLINE HCL [Suspect]
     Indication: SHUNT MALFUNCTION
     Dosage: DOSE: UNKNOWN
  4. MINOCYCLINE HCL [Suspect]
     Indication: INFECTION
     Dosage: DOSE: UNKNOWN
  5. ROCEPHIN [Concomitant]
     Dosage: DOSE: UNKNOWN
  6. VANCOMYCIN [Concomitant]
     Dosage: DOSE: UNKNOWN

REACTIONS (6)
  - EOSINOPHIL COUNT INCREASED [None]
  - HEADACHE [None]
  - MENINGITIS EOSINOPHILIC [None]
  - NAUSEA [None]
  - VOMITING [None]
  - WHITE BLOOD CELL COUNT INCREASED [None]
